FAERS Safety Report 7099888-8 (Version None)
Quarter: 2010Q4

REPORT INFORMATION
  Report Type: 
  Country: None (occurrence: None)
  Receive Date: 20101112
  Receipt Date: 20101005
  Transmission Date: 20110411
  Serious: Yes (Hospitalization)
  Sender: FDA-Public Use
  Company Number: FR-GENZYME-FLUD-1000288

PATIENT
  Sex: Male
  Weight: 72 kg

DRUGS (13)
  1. FLUDARA [Suspect]
     Indication: STEM CELL TRANSPLANT
     Dosage: 30 MG/M2, QDX5
     Route: 042
  2. FLUDARA [Suspect]
     Indication: NON-HODGKIN'S LYMPHOMA RECURRENT
  3. ZEVALIN [Suspect]
     Indication: STEM CELL TRANSPLANT
     Dosage: 0.4 MCI/KG, ONCE
     Route: 042
     Dates: start: 20090831, end: 20090831
  4. ZEVALIN [Suspect]
     Indication: NON-HODGKIN'S LYMPHOMA RECURRENT
  5. YTRACIS [Suspect]
     Indication: STEM CELL TRANSPLANT
     Dosage: 0.4 MCI/KG, ONCE
     Route: 042
  6. YTRACIS [Suspect]
     Indication: NON-HODGKIN'S LYMPHOMA RECURRENT
  7. RITUXIMAB [Suspect]
     Indication: STEM CELL TRANSPLANT
     Dosage: 250 MG/M2, ONCE
     Route: 042
  8. RITUXIMAB [Suspect]
     Indication: NON-HODGKIN'S LYMPHOMA RECURRENT
  9. BUSULFAN [Suspect]
     Indication: STEM CELL TRANSPLANT
     Dosage: UNK, QDX2
     Route: 048
  10. BUSULFAN [Suspect]
     Indication: NON-HODGKIN'S LYMPHOMA RECURRENT
  11. THYMOGLOBULIN [Suspect]
     Indication: STEM CELL TRANSPLANT
     Dosage: 2.5 MG/KG, ONCE
     Route: 065
  12. THYMOGLOBULIN [Suspect]
     Indication: NON-HODGKIN'S LYMPHOMA RECURRENT
  13. CYCLOSPORINE [Concomitant]
     Indication: PROPHYLAXIS AGAINST GRAFT VERSUS HOST DISEASE
     Dosage: UNK

REACTIONS (5)
  - BRONCHOPULMONARY ASPERGILLOSIS [None]
  - DEVICE RELATED INFECTION [None]
  - HUMAN HERPES VIRUS 6 SEROLOGY POSITIVE [None]
  - LYMPHOCYTOSIS [None]
  - RHINOVIRUS INFECTION [None]
